FAERS Safety Report 5079340-1 (Version None)
Quarter: 2006Q3

REPORT INFORMATION
  Report Type: 
  Country: None (occurrence: None)
  Receive Date: 20060814
  Receipt Date: 20060505
  Transmission Date: 20061208
  Serious: Yes (Hospitalization, Other)
  Sender: FDA-Public Use
  Company Number: PHBS2006CH06735

PATIENT
  Age: 62 Year
  Sex: Male

DRUGS (14)
  1. COMTAN [Suspect]
     Indication: PARKINSON'S DISEASE
     Dosage: 200 MG, 5QD
     Route: 065
  2. MADOPAR [Suspect]
     Dosage: 62.5 MG/D
     Dates: start: 20051112
  3. MADOPAR CR [Suspect]
     Dosage: 850 MG/DAY
  4. MADOPAR CR [Suspect]
     Dosage: 950 MG/DAY
     Dates: start: 20060308
  5. MADOPAR CR [Suspect]
     Dosage: 250 MG, 5QD
     Dates: start: 20051112
  6. REQUIP [Suspect]
     Dosage: 2 MG, QID
     Dates: start: 20051112
  7. DETRUSITOL RETARD [Suspect]
     Dosage: 4 MG, QD
     Dates: start: 20051112
  8. SEROQUEL [Suspect]
     Dosage: 100 MG, BID
  9. SEROQUEL [Suspect]
     Dosage: 100 MG, BID
     Dates: start: 20060308
  10. CHLORALDURAT [Suspect]
     Dosage: 250 MG, BID
     Dates: start: 20060308
  11. TEMESTA [Suspect]
     Dosage: UNK, PRN
  12. PROSCAR [Concomitant]
     Dosage: 1 DF, QD
     Route: 048
  13. HEPATODORON [Concomitant]
     Dosage: 2 DF, 5QD
  14. URISPAS [Concomitant]

REACTIONS (4)
  - ANXIETY [None]
  - CONDITION AGGRAVATED [None]
  - HALLUCINATION, VISUAL [None]
  - MUSCULOSKELETAL STIFFNESS [None]
